FAERS Safety Report 15644539 (Version 1)
Quarter: 2018Q4

REPORT INFORMATION
  Report Type: Spontaneous
  Country: US (occurrence: US)
  Receive Date: 20181121
  Receipt Date: 20181121
  Transmission Date: 20190205
  Serious: Yes (Life-Threatening)
  Sender: FDA-Public Use
  Company Number: None

PATIENT
  Age: 29 Year
  Sex: Female
  Weight: 121.95 kg

DRUGS (5)
  1. TERBUTALINE SULFATE. [Suspect]
     Active Substance: TERBUTALINE SULFATE
     Indication: PREMATURE LABOUR
     Route: 042
     Dates: start: 20181119, end: 20181119
  2. PRENATAL VITAMINS [Concomitant]
     Active Substance: VITAMINS
  3. NOVOLOG [Concomitant]
     Active Substance: INSULIN ASPART
  4. ALBUTEROL. [Concomitant]
     Active Substance: ALBUTEROL
  5. NOVOLIN N [Concomitant]
     Active Substance: INSULIN HUMAN

REACTIONS (7)
  - Heart rate increased [None]
  - Blood pressure increased [None]
  - Exposure during pregnancy [None]
  - Cardiac disorder [None]
  - Caesarean section [None]
  - Dyspnoea [None]
  - Seizure [None]

NARRATIVE: CASE EVENT DATE: 20181119
